FAERS Safety Report 6592879-2 (Version None)
Quarter: 2010Q1

REPORT INFORMATION
  Report Type: 
  Country: None (occurrence: None)
  Receive Date: 20100212
  Receipt Date: 20100118
  Transmission Date: 20100710
  Serious: Yes (Hospitalization)
  Sender: FDA-Public Use
  Company Number: 2010SP003874

PATIENT
  Age: 80 Year
  Sex: Female
  Weight: 59 kg

DRUGS (18)
  1. NORCURON [Suspect]
     Indication: DRUG USE FOR UNKNOWN INDICATION
  2. GENTAMICIN SULFATE [Suspect]
     Indication: DRUG USE FOR UNKNOWN INDICATION
  3. MIDAZOLAM HCL [Suspect]
     Indication: DRUG USE FOR UNKNOWN INDICATION
  4. FENTANYL-100 [Suspect]
     Indication: DRUG USE FOR UNKNOWN INDICATION
  5. METRAMINOL TARTATE (METARAMINOL TARTRATE) [Suspect]
     Indication: DRUG USE FOR UNKNOWN INDICATION
  6. ONDANSETRON HYDROCHLORIDE DIHYDRATE (ONDANSETRON HYDROCHLORIDE) [Suspect]
     Indication: DRUG USE FOR UNKNOWN INDICATION
  7. VANCOMYCIN HYDROCHLORIDE [Suspect]
     Indication: DRUG USE FOR UNKNOWN INDICATION
  8. ACETAMINOPHEN [Suspect]
     Indication: DRUG USE FOR UNKNOWN INDICATION
  9. AMITRIPTYLINE HYDROCHLORIDE [Concomitant]
  10. ATENOLOL [Concomitant]
  11. ATORVASTATIN [Concomitant]
  12. DIAZEPAM [Concomitant]
  13. ESCITALOPRAM [Concomitant]
  14. FOLIC ACID [Concomitant]
  15. MORPHINE [Concomitant]
  16. PROPOFOL [Concomitant]
  17. SUGAMMADEX [Concomitant]
  18. LEVOTHYROXINE SODIUM [Concomitant]

REACTIONS (8)
  - ALANINE AMINOTRANSFERASE INCREASED [None]
  - ASPARTATE AMINOTRANSFERASE INCREASED [None]
  - BLOOD ALKALINE PHOSPHATASE INCREASED [None]
  - BLOOD BILIRUBIN INCREASED [None]
  - BLOOD LACTATE DEHYDROGENASE INCREASED [None]
  - GAMMA-GLUTAMYLTRANSFERASE INCREASED [None]
  - LIVER INJURY [None]
  - POST PROCEDURAL COMPLICATION [None]
